FAERS Safety Report 6036538-3 (Version None)
Quarter: 2009Q1

REPORT INFORMATION
  Report Type: 
  Country: None (occurrence: None)
  Receive Date: 20090114
  Receipt Date: 20090107
  Transmission Date: 20090719
  Serious: Yes (Hospitalization, Other)
  Sender: FDA-Public Use
  Company Number: US-ASTRAZENECA-2009UW00759

PATIENT
  Age: 34 Year
  Sex: Female

DRUGS (1)
  1. SEROQUEL [Suspect]
     Route: 048

REACTIONS (6)
  - ADRENAL INSUFFICIENCY [None]
  - CEREBRAL HAEMORRHAGE [None]
  - HYPOPITUITARISM [None]
  - HYPOTHYROIDISM [None]
  - RHABDOMYOLYSIS [None]
  - ROAD TRAFFIC ACCIDENT [None]
